FAERS Safety Report 6549379-5 (Version None)
Quarter: 2010Q1

REPORT INFORMATION
  Report Type: 
  Country: None (occurrence: None)
  Receive Date: 20100125
  Receipt Date: 20100118
  Transmission Date: 20100710
  Serious: Yes (Hospitalization)
  Sender: FDA-Public Use
  Company Number: PHHO2008JP05338

PATIENT
  Sex: Male
  Weight: 56 kg

DRUGS (9)
  1. CERTICAN [Suspect]
     Indication: RENAL TRANSPLANT
     Dosage: 1.5 MG, QD
     Route: 048
     Dates: start: 20080325, end: 20080523
  2. CERTICAN [Suspect]
     Dosage: 3 MG, QD
     Dates: start: 20080523
  3. NEORAL [Suspect]
     Indication: RENAL TRANSPLANT
     Dosage: 420 MG, QD
     Dates: start: 20000321, end: 20080324
  4. NEORAL [Suspect]
     Dosage: UNK
     Dates: start: 20080325, end: 20080325
  5. NEORAL [Suspect]
     Dosage: 420 MG, QD
     Dates: start: 20080326
  6. BASILIXIMAB [Suspect]
     Indication: RENAL TRANSPLANT
     Dosage: UNK, UNK
     Route: 042
     Dates: start: 20080328, end: 20080328
  7. BASILIXIMAB [Suspect]
     Dosage: UNK
     Route: 042
     Dates: start: 20080328, end: 20080328
  8. MEDROL [Suspect]
     Indication: RENAL TRANSPLANT
     Dosage: 40 MG, DAILY
     Route: 048
     Dates: start: 20080325
  9. SANDIMMUNE [Concomitant]
     Dates: start: 20080324, end: 20080326

REACTIONS (7)
  - ADENOVIRAL HAEMORRHAGIC CYSTITIS [None]
  - C-REACTIVE PROTEIN INCREASED [None]
  - DYSURIA [None]
  - HAEMATURIA [None]
  - LYMPHOCYTIC INFILTRATION [None]
  - PROTEINURIA [None]
  - RESIDUAL URINE [None]
